FAERS Safety Report 10254113 (Version 1)
Quarter: 2014Q2

REPORT INFORMATION
  Report Type: Spontaneous
  Country: DK (occurrence: DK)
  Receive Date: 20140623
  Receipt Date: 20140623
  Transmission Date: 20141212
  Serious: Yes (Disabling)
  Sender: FDA-Public Use
  Company Number: PHHY2014DK073133

PATIENT
  Age: 10 Year
  Sex: Male

DRUGS (2)
  1. METHOTREXATE SANDOZ [Suspect]
     Indication: PSORIASIS
     Dosage: 7.5 MG, QW
     Route: 048
     Dates: start: 20131001, end: 20140120
  2. DERMOVAT [Concomitant]
     Indication: PSORIASIS
     Dates: start: 20120108

REACTIONS (3)
  - Personality change [Recovered/Resolved]
  - Aggression [Recovered/Resolved]
  - Asocial behaviour [Recovered/Resolved]
